FAERS Safety Report 21622006 (Version 2)
Quarter: 2023Q2

REPORT INFORMATION
  Report Type: Spontaneous
  Country: US (occurrence: US)
  Receive Date: 20221121
  Receipt Date: 20230517
  Transmission Date: 20230721
  Serious: No
  Sender: FDA-Public Use
  Company Number: US-ORGANON-O2211USA001617

PATIENT
  Age: 19 Year
  Sex: Female
  Weight: 98.866 kg

DRUGS (3)
  1. NEXPLANON [Suspect]
     Active Substance: ETONOGESTREL
     Indication: Contraception
     Dosage: LEFT ARM IMPLANT
     Route: 059
     Dates: start: 20220823
  2. LITHIUM [Concomitant]
     Active Substance: LITHIUM
     Dosage: UNK
  3. ABILIFY [Concomitant]
     Active Substance: ARIPIPRAZOLE
     Dosage: UNK

REACTIONS (5)
  - Heavy menstrual bleeding [Not Recovered/Not Resolved]
  - Vaginal haemorrhage [Not Recovered/Not Resolved]
  - Vaginal haemorrhage [Unknown]
  - Dysmenorrhoea [Unknown]
  - Heavy menstrual bleeding [Unknown]

NARRATIVE: CASE EVENT DATE: 20221001
